FAERS Safety Report 24191519 (Version 1)
Quarter: 2024Q3

REPORT INFORMATION
  Report Type: Spontaneous
  Country: CN (occurrence: CN)
  Receive Date: 20240808
  Receipt Date: 20240808
  Transmission Date: 20241016
  Serious: Yes (Hospitalization)
  Sender: ELI LILLY AND CO
  Company Number: CN-Merck Healthcare KGaA-2024041921

PATIENT
  Age: 59 Year
  Sex: Male
  Weight: 60 kg

DRUGS (9)
  1. ERBITUX [Suspect]
     Active Substance: CETUXIMAB
     Indication: Squamous cell carcinoma of the oral cavity
     Dosage: 688 MG, UNKNOWN
     Route: 041
     Dates: start: 20240417, end: 20240417
  2. ERBITUX [Suspect]
     Active Substance: CETUXIMAB
     Dosage: 430 MG, UNKNOWN
     Route: 041
     Dates: start: 20240424, end: 20240424
  3. CISPLATIN [Suspect]
     Active Substance: CISPLATIN
     Indication: Squamous cell carcinoma of the oral cavity
     Dosage: 40 MG, DAILY
     Route: 041
     Dates: start: 20240418, end: 20240419
  4. FLUOROURACIL [Concomitant]
     Active Substance: FLUOROURACIL
     Indication: Squamous cell carcinoma of the oral cavity
     Dosage: 6 G, UNK
     Route: 042
     Dates: start: 20240417
  5. DEXAMETHASONE SODIUM PHOSPHATE [Concomitant]
     Active Substance: DEXAMETHASONE PHOSPHATE\DEXAMETHASONE SODIUM PHOSPHATE
     Indication: Premedication
     Dosage: 10 MG, DAILY
     Route: 041
     Dates: start: 20240424, end: 20240424
  6. LORATADINE [Concomitant]
     Active Substance: LORATADINE
     Indication: Premedication
     Dosage: 10 MG, DAILY
     Route: 048
     Dates: start: 20240424, end: 20240424
  7. SILYMARINE [Concomitant]
     Indication: Prophylaxis
     Dosage: 140 MG, UNK
     Route: 048
     Dates: start: 20240417, end: 20240423
  8. PANTOPRAZOLE SODIUM [Concomitant]
     Active Substance: PANTOPRAZOLE SODIUM
     Indication: Prophylaxis
     Dosage: 40 MG, DAILY
     Route: 048
     Dates: start: 20240417, end: 20240423
  9. TROPISETRON HYDROCHLORIDE [Concomitant]
     Active Substance: TROPISETRON HYDROCHLORIDE
     Indication: Prophylaxis of nausea and vomiting
     Dosage: 5 MG, DAILY
     Route: 041
     Dates: start: 20240418, end: 20240424

REACTIONS (1)
  - Myelosuppression [Recovering/Resolving]

NARRATIVE: CASE EVENT DATE: 20240508
